FAERS Safety Report 5426178-9 (Version None)
Quarter: 2007Q3

REPORT INFORMATION
  Report Type: 
  Country: None (occurrence: None)
  Receive Date: 20070827
  Receipt Date: 20070820
  Transmission Date: 20080115
  Serious: Yes (Other)
  Sender: FDA-Public Use
  Company Number: A0673086A

PATIENT
  Sex: Male

DRUGS (8)
  1. EPIVIR-HBV [Suspect]
     Indication: HEPATITIS B
     Dosage: 150MG TWICE PER DAY
     Route: 048
  2. AZT [Suspect]
     Indication: HIV INFECTION
     Dosage: 200MG TWICE PER DAY
     Route: 048
  3. VIREAD [Concomitant]
  4. HYDROCHLOROTHIAZIDE [Concomitant]
  5. FAMVIR [Concomitant]
  6. TRAZODONE HCL [Concomitant]
  7. SUSTIVA [Concomitant]
  8. PAIN MEDICATION (UNSPECIFIED) [Concomitant]

REACTIONS (10)
  - AREFLEXIA [None]
  - CYST [None]
  - HEADACHE [None]
  - HEPATIC ENZYME INCREASED [None]
  - HYPOREFLEXIA [None]
  - INTERVERTEBRAL DISC PROTRUSION [None]
  - MUSCULOSKELETAL CHEST PAIN [None]
  - MUSCULOSKELETAL DISORDER [None]
  - MYOCARDIAL INFARCTION [None]
  - PAIN [None]
